FAERS Safety Report 8517565-0 (Version None)
Quarter: 2012Q3

REPORT INFORMATION
  Report Type: 
  Country: None (occurrence: None)
  Receive Date: 20120718
  Receipt Date: 20120704
  Transmission Date: 20120928
  Serious: Yes (Death)
  Sender: FDA-Public Use
  Company Number: JP-ROCHE-1084712

PATIENT
  Age: 70 Year
  Sex: Male

DRUGS (10)
  1. OXALIPLATIN [Concomitant]
     Indication: COLON CANCER RECURRENT
     Dosage: DOSAGE IS UNCERTAIN.
     Route: 041
  2. IRINOTECAN HCL [Concomitant]
     Indication: COLON CANCER RECURRENT
     Dosage: DOSAGE IS UNCERTAIN.
     Route: 041
  3. AVASTIN [Suspect]
     Dosage: DOSAGE IS UNCERTAIN.
     Route: 041
  4. FLUOROURACIL [Concomitant]
     Dosage: DOSAGE IS UNCERTAIN.
     Route: 041
  5. FLUOROURACIL [Concomitant]
     Dosage: DOSAGE IS UNCERTAIN.
     Route: 041
  6. AVASTIN [Suspect]
     Indication: COLON CANCER RECURRENT
     Dosage: DOSAGE IS UNCERTAIN.
     Route: 041
  7. LEVOLEUCOVORIN CALCIUM [Concomitant]
     Dosage: DOSAGE IS UNCERTAIN.
     Route: 041
  8. LEVOLEUCOVORIN CALCIUM [Concomitant]
     Indication: COLON CANCER RECURRENT
     Dosage: DOSAGE IS UNCERTAIN.
     Route: 041
  9. FLUOROURACIL [Concomitant]
     Indication: COLON CANCER RECURRENT
     Dosage: DOSAGE IS UNCERTAIN.
     Route: 040
  10. FLUOROURACIL [Concomitant]
     Dosage: DOSAGE IS UNCERTAIN.
     Route: 040

REACTIONS (2)
  - COLON CANCER RECURRENT [None]
  - DECREASED APPETITE [None]
